FAERS Safety Report 15281666 (Version 1)
Quarter: 2018Q3

REPORT INFORMATION
  Report Type: Spontaneous
  Country: IN (occurrence: IN)
  Receive Date: 20180815
  Receipt Date: 20180815
  Transmission Date: 20181010
  Serious: Yes (Other)
  Sender: FDA-Public Use
  Company Number: IN-MYLANLABS-2018M1060422

PATIENT
  Age: 33 Year
  Sex: Female

DRUGS (6)
  1. DESMOPRESSIN [Suspect]
     Active Substance: DESMOPRESSIN
     Indication: POLYURIA
     Dosage: THREE TIMES A DAY
     Route: 065
  2. MYCOPHENOLATE MOFETIL. [Suspect]
     Active Substance: MYCOPHENOLATE MOFETIL
     Indication: LYMPHOCYTIC HYPOPHYSITIS
     Route: 065
  3. DESMOPRESSIN [Suspect]
     Active Substance: DESMOPRESSIN
     Dosage: INITIAL DOSAGE NOT STATED
     Route: 065
  4. ESTROGEN [Concomitant]
     Active Substance: ESTROGENS
     Indication: PRODUCT USED FOR UNKNOWN INDICATION
     Route: 065
  5. THYROXINE [Concomitant]
     Active Substance: LEVOTHYROXINE
     Indication: PRODUCT USED FOR UNKNOWN INDICATION
     Route: 065
  6. DESMOPRESSIN [Suspect]
     Active Substance: DESMOPRESSIN
     Route: 065

REACTIONS (3)
  - Drug ineffective [Unknown]
  - Fluid retention [Unknown]
  - Generalised oedema [Unknown]
